FAERS Safety Report 17763241 (Version 1)
Quarter: 2020Q2

REPORT INFORMATION
  Report Type: Spontaneous
  Country: CN (occurrence: CN)
  Receive Date: 20200508
  Receipt Date: 20200508
  Transmission Date: 20200714
  Serious: Yes (Other)
  Sender: FDA-Public Use
  Company Number: CN-BAXTER-2020BAX009524

PATIENT
  Age: 38 Year
  Sex: Female
  Weight: 54 kg

DRUGS (13)
  1. 0.9% SODIUM CHLORIDE INJECTION [Suspect]
     Active Substance: SODIUM CHLORIDE
     Dosage: NS + ENDOXAN 850 MG, 4TH CHEMOTHERAPY
     Route: 042
     Dates: start: 20200226, end: 20200226
  2. 0.9% SODIUM CHLORIDE INJECTION [Suspect]
     Active Substance: SODIUM CHLORIDE
     Dosage: NS + TASUODI 118 MG, 4TH CHEMOTHERAPY
     Route: 041
     Dates: start: 20200226, end: 20200226
  3. 0.9% SODIUM CHLORIDE INJECTION [Suspect]
     Active Substance: SODIUM CHLORIDE
     Indication: MEDICATION DILUTION
     Dosage: NS + ENDOXAN, RECEIVED FIRST 3 CHEMOTHERAPIES
     Route: 042
  4. XINRUIBA [Concomitant]
     Indication: PRODUCT USED FOR UNKNOWN INDICATION
     Route: 058
     Dates: start: 20200227
  5. ENDOXAN [Suspect]
     Active Substance: CYCLOPHOSPHAMIDE
     Dosage: ENDOXAN + NS 45 ML, 4TH CHEMOTHERAPY
     Route: 042
     Dates: start: 20200226, end: 20200226
  6. TASUODI [DOCETAXEL] [Suspect]
     Active Substance: DOCETAXEL
     Dosage: TASUODI + NS, DOSE RE-INTRODUCED
     Route: 041
  7. ENDOXAN [Suspect]
     Active Substance: CYCLOPHOSPHAMIDE
     Dosage: ENDOXAN + NS, DOSE- RE-INTRODUCED
     Route: 042
  8. 0.9% SODIUM CHLORIDE INJECTION [Suspect]
     Active Substance: SODIUM CHLORIDE
     Dosage: NS+ TASUODI, RECEIVED FIRST 3 CHEMOTHERAPIES
     Route: 041
  9. TASUODI [DOCETAXEL] [Suspect]
     Active Substance: DOCETAXEL
     Indication: BREAST CANCER FEMALE
     Dosage: TASUODI + NS, RECEIVED FIRST 3 CHEMOTHERAPIES
     Route: 041
  10. TASUODI [DOCETAXEL] [Suspect]
     Active Substance: DOCETAXEL
     Dosage: TASUODI + NS 250 ML, 4TH CHEMOTHERAPY
     Route: 041
     Dates: start: 20200226, end: 20200226
  11. 0.9% SODIUM CHLORIDE INJECTION [Suspect]
     Active Substance: SODIUM CHLORIDE
     Dosage: NS + ENDOXAN, DOSE-REINTRODUCED
     Route: 042
  12. 0.9% SODIUM CHLORIDE INJECTION [Suspect]
     Active Substance: SODIUM CHLORIDE
     Dosage: NS + TASUODI, DOSE-REINTRODUCED
     Route: 041
  13. ENDOXAN [Suspect]
     Active Substance: CYCLOPHOSPHAMIDE
     Indication: BREAST CANCER FEMALE
     Dosage: ENDOXAN + NS, RECEIVED FIRST 3 CHEMOTHERAPIES
     Route: 042

REACTIONS (1)
  - Agranulocytosis [Recovered/Resolved]

NARRATIVE: CASE EVENT DATE: 20200304
